FAERS Safety Report 5531454-5 (Version None)
Quarter: 2007Q4

REPORT INFORMATION
  Report Type: 
  Country: None (occurrence: None)
  Receive Date: 20071128
  Receipt Date: 20071128
  Transmission Date: 20080405
  Serious: Yes (Other)
  Sender: FDA-Public Use
  Company Number: None

PATIENT
  Age: 37 Year
  Sex: Female
  Weight: 68.0396 kg

DRUGS (2)
  1. PAXIL [Suspect]
     Indication: ANXIETY
     Dosage: 20 MG DAILY PO
     Route: 048
  2. PAXIL CR [Suspect]
     Indication: ANXIETY
     Dosage: 25MG DAILY PO
     Route: 048
     Dates: end: 20070922

REACTIONS (20)
  - ABNORMAL BEHAVIOUR [None]
  - AGGRESSION [None]
  - ALCOHOL ABUSE [None]
  - BIPOLAR DISORDER [None]
  - DELUSION [None]
  - DIZZINESS [None]
  - DRUG EXPOSURE BEFORE PREGNANCY [None]
  - DRUG EXPOSURE DURING PREGNANCY [None]
  - DRUG WITHDRAWAL SYNDROME [None]
  - GRANDIOSITY [None]
  - HEADACHE [None]
  - HYPOMANIA [None]
  - MANIA [None]
  - MARITAL PROBLEM [None]
  - NERVOUS SYSTEM DISORDER [None]
  - PARAESTHESIA [None]
  - PERSONALITY CHANGE [None]
  - PREGNANCY [None]
  - TREMOR [None]
  - WEIGHT DECREASED [None]
